FAERS Safety Report 24589128 (Version 1)
Quarter: 2024Q4

REPORT INFORMATION
  Report Type: Report from Study
  Country: GB (occurrence: GB)
  Receive Date: 20241107
  Receipt Date: 20241107
  Transmission Date: 20250115
  Serious: Yes (Hospitalization)
  Sender: ABBVIE
  Company Number: GB-ABBVIE-5991677

PATIENT
  Sex: Female

DRUGS (1)
  1. HUMIRA [Suspect]
     Active Substance: ADALIMUMAB
     Indication: Rheumatoid arthritis
     Route: 058

REACTIONS (6)
  - Myocardial infarction [Unknown]
  - White blood cell count decreased [Unknown]
  - Malaise [Unknown]
  - Lower respiratory tract infection [Unknown]
  - Back pain [Unknown]
  - Illness [Unknown]
